FAERS Safety Report 5250260-2 (Version None)
Quarter: 2007Q1

REPORT INFORMATION
  Report Type: 
  Country: None (occurrence: None)
  Receive Date: 20070228
  Receipt Date: 20060306
  Transmission Date: 20070707
  Serious: No
  Sender: FDA-Public Use
  Company Number: 23088K06USA

PATIENT
  Age: 44 Year
  Sex: Female

DRUGS (3)
  1. LAMICTAL [Suspect]
     Indication: DRUG USE FOR UNKNOWN INDICATION
     Route: 048
  2. CYMBALTA [Suspect]
     Indication: DRUG USE FOR UNKNOWN INDICATION
     Route: 065
  3. REBIF [Suspect]
     Indication: DRUG USE FOR UNKNOWN INDICATION
     Route: 065

REACTIONS (4)
  - DRUG ERUPTION [None]
  - ERYTHEMA [None]
  - IMMUNE SYSTEM DISORDER [None]
  - PRURITUS [None]
